FAERS Safety Report 11429400 (Version 1)
Quarter: 2015Q3

REPORT INFORMATION
  Report Type: Spontaneous
  Country: US (occurrence: US)
  Receive Date: 20150828
  Receipt Date: 20150828
  Transmission Date: 20151125
  Serious: No
  Sender: FDA-Public Use
  Company Number: US-ROCHE-1214758

PATIENT
  Sex: Female

DRUGS (3)
  1. RIBASPHERE [Suspect]
     Active Substance: RIBAVIRIN
     Indication: HEPATITIS C VIRUS TEST POSITIVE
     Dosage: 2 DIVIDED DOSES, FOR INITIAL 12 WEEKS OF THERAPY
     Route: 048
     Dates: start: 20130414
  2. PEGASYS [Suspect]
     Active Substance: PEGINTERFERON ALFA-2A
     Indication: HEPATITIS C VIRUS TEST POSITIVE
     Dosage: FOR INITIAL 12 WEEKS OF THERAPY
     Route: 058
     Dates: start: 20130414
  3. INCIVEK [Suspect]
     Active Substance: TELAPREVIR
     Indication: HEPATITIS C VIRUS TEST POSITIVE
     Dosage: FOR INITIAL 12 WEEKS OF THERAPY
     Route: 065
     Dates: start: 20130414

REACTIONS (3)
  - Extra dose administered [Unknown]
  - Nausea [Unknown]
  - Pruritus [Unknown]
